FAERS Safety Report 25975996 (Version 1)
Quarter: 2025Q4

REPORT INFORMATION
  Report Type: Spontaneous
  Country: US (occurrence: US)
  Receive Date: 20251029
  Receipt Date: 20251029
  Transmission Date: 20260117
  Serious: Yes (Hospitalization, Other)
  Sender: INCYTE
  Company Number: US-INCYTE CORPORATION-2025IN011834

PATIENT
  Weight: 61.587 kg

DRUGS (3)
  1. JAKAFI [Suspect]
     Active Substance: RUXOLITINIB
     Indication: Chronic graft versus host disease
     Dosage: 5 MILLIGRAM, BID
  2. DARZALEX [Concomitant]
     Active Substance: DARATUMUMAB
     Indication: Product used for unknown indication
     Dosage: 400MG/20ML VIAL
     Route: 065
  3. TACROLIMUS [Concomitant]
     Active Substance: TACROLIMUS
     Indication: Product used for unknown indication
     Dosage: 0.5 MILLIGRAM
     Route: 065

REACTIONS (1)
  - Renal failure [Unknown]
